FAERS Safety Report 5248593-9 (Version None)
Quarter: 2007Q1

REPORT INFORMATION
  Report Type: 
  Country: None (occurrence: None)
  Receive Date: 20070227
  Receipt Date: 20070215
  Transmission Date: 20070707
  Serious: Yes (Hospitalization, Other)
  Sender: FDA-Public Use
  Company Number: US-PFIZER INC-2007014301

PATIENT
  Sex: Female

DRUGS (2)
  1. CHANTIX [Suspect]
  2. PREDNISONE [Suspect]

REACTIONS (5)
  - ASTHMA [None]
  - CARDIAC DISORDER [None]
  - FEELING ABNORMAL [None]
  - MELAENA [None]
  - PNEUMONITIS [None]
